FAERS Safety Report 4776325-7 (Version None)
Quarter: 2005Q3

REPORT INFORMATION
  Report Type: 
  Country: None (occurrence: None)
  Receive Date: 20050921
  Receipt Date: 20050905
  Transmission Date: 20060218
  Serious: Yes (Hospitalization)
  Sender: FDA-Public Use
  Company Number: 2005P1000379

PATIENT
  Age: 65 Year
  Sex: Male

DRUGS (1)
  1. NICARDIPINE HCL [Suspect]
     Indication: HYPERTENSION
     Dosage: IV
     Route: 042
     Dates: start: 20040415, end: 20040415

REACTIONS (6)
  - BLOOD PRESSURE DECREASED [None]
  - GASTROINTESTINAL NECROSIS [None]
  - INTESTINAL GANGRENE [None]
  - INTESTINAL ISCHAEMIA [None]
  - PERITONITIS [None]
  - PYREXIA [None]
